FAERS Safety Report 22208810 (Version 1)
Quarter: 2023Q2

REPORT INFORMATION
  Report Type: Spontaneous
  Country: CA (occurrence: CA)
  Receive Date: 20230413
  Receipt Date: 20230413
  Transmission Date: 20230722
  Serious: Yes (Other)
  Sender: FDA-Public Use
  Company Number: CA-SAMSUNG BIOEPIS-SB-2023-09319

PATIENT
  Age: 44 Year
  Sex: Female
  Weight: 61 kg

DRUGS (1)
  1. INFLIXIMAB [Suspect]
     Active Substance: INFLIXIMAB
     Indication: Colitis ulcerative
     Route: 042

REACTIONS (10)
  - Bacterial vaginosis [Recovered/Resolved]
  - COVID-19 [Recovered/Resolved]
  - Cardiac discomfort [Recovered/Resolved]
  - Dizziness [Recovered/Resolved]
  - Haematochezia [Recovered/Resolved]
  - Hypoaesthesia [Recovered/Resolved]
  - Seasonal allergy [Recovered/Resolved]
  - Vertigo [Recovered/Resolved]
  - Intentional product use issue [Recovered/Resolved]
  - Off label use [Recovered/Resolved]
